FAERS Safety Report 13985215 (Version 3)
Quarter: 2017Q4

REPORT INFORMATION
  Report Type: Spontaneous
  Country: CA (occurrence: CA)
  Receive Date: 20170919
  Receipt Date: 20171127
  Transmission Date: 20180321
  Serious: Yes (Hospitalization, Other)
  Sender: FDA-Public Use
  Company Number: CA-ORION CORPORATION ORION PHARMA-TREX2017-2868

PATIENT
  Age: 63 Year
  Sex: Male

DRUGS (21)
  1. METHOTREXATE (TRADE NAME UNKNOWN) [Suspect]
     Active Substance: METHOTREXATE
     Dosage: 8 TABLETS ONCE WEEKLY AND ON OTHER DAYS OF THE WEEK 1 TABLET; STRENGTH: 2.5 MG
     Route: 065
  2. VITAMIN B12 [Concomitant]
     Active Substance: CYANOCOBALAMIN
     Route: 065
  3. PANTOPRAZOLE [Concomitant]
     Active Substance: PANTOPRAZOLE
     Route: 065
  4. RAPAFLO [Concomitant]
     Active Substance: SILODOSIN
     Route: 065
  5. QUETIAPINE. [Concomitant]
     Active Substance: QUETIAPINE
     Route: 065
  6. TRAZODONE [Concomitant]
     Active Substance: TRAZODONE HYDROCHLORIDE
     Route: 065
  7. SENOKOT [Concomitant]
     Active Substance: SENNOSIDES
     Route: 065
  8. COVERSYL [Concomitant]
     Active Substance: PERINDOPRIL
     Route: 065
  9. ABILIFY [Concomitant]
     Active Substance: ARIPIPRAZOLE
     Route: 065
  10. NOVO-SPIROZINE [Concomitant]
     Dosage: 25/25 MG
     Route: 065
  11. ATORVASTATIN [Concomitant]
     Active Substance: ATORVASTATIN
     Route: 065
  12. ADVIL [Concomitant]
     Active Substance: IBUPROFEN
     Route: 065
  13. LEVETIRACETAM. [Concomitant]
     Active Substance: LEVETIRACETAM
     Route: 065
  14. LORAZEPAM. [Concomitant]
     Active Substance: LORAZEPAM
     Route: 065
  15. SALOFALK [Concomitant]
     Active Substance: MESALAMINE
     Route: 065
  16. ALLOPURINOL. [Concomitant]
     Active Substance: ALLOPURINOL
     Route: 065
  17. INDOMETHACIN. [Concomitant]
     Active Substance: INDOMETHACIN
     Route: 065
  18. HYDROXYCHLOROQUINE [Concomitant]
     Active Substance: HYDROXYCHLOROQUINE
     Route: 065
  19. AMITRIPTYLINE [Concomitant]
     Active Substance: AMITRIPTYLINE
     Route: 065
  20. INFLECTRA [Suspect]
     Active Substance: INFLIXIMAB-DYYB
     Indication: RHEUMATOID ARTHRITIS
     Dosage: EVERY 0, 2, 6 WEEKS THEN EVERY 8 WEEKS
     Route: 042
  21. FOLIC ACID. [Concomitant]
     Active Substance: FOLIC ACID
     Route: 065

REACTIONS (4)
  - Loss of consciousness [Unknown]
  - Laceration [Unknown]
  - Mental disorder [Unknown]
  - Fall [Unknown]

NARRATIVE: CASE EVENT DATE: 20170901
